FAERS Safety Report 8107400-7 (Version None)
Quarter: 2012Q1

REPORT INFORMATION
  Report Type: 
  Country: None (occurrence: None)
  Receive Date: 20120202
  Receipt Date: 20120131
  Transmission Date: 20120608
  Serious: Yes (Death)
  Sender: FDA-Public Use
  Company Number: US-PFIZER INC-2011313912

PATIENT
  Age: 37 Year
  Sex: Female

DRUGS (5)
  1. ALPRAZOLAM [Suspect]
     Route: 048
  2. QUETIAPINE [Suspect]
     Route: 048
  3. DILTIAZEM HCL [Suspect]
     Route: 048
  4. ACETAMINOPHEN AND HYDROCODONE BITARTRATE [Suspect]
     Route: 048
  5. MEPROBAMATE [Suspect]
     Route: 048

REACTIONS (3)
  - RESPIRATORY ARREST [None]
  - CARDIAC ARREST [None]
  - DRUG ABUSE [None]
